FAERS Safety Report 14008912 (Version 3)
Quarter: 2017Q4

REPORT INFORMATION
  Report Type: Spontaneous
  Country: BR (occurrence: BR)
  Receive Date: 20170925
  Receipt Date: 20171212
  Transmission Date: 20180321
  Serious: Yes (Death, Hospitalization)
  Sender: FDA-Public Use
  Company Number: BR-SA-2017SA178112

PATIENT
  Age: 36 Year
  Sex: Male
  Weight: 68 kg

DRUGS (10)
  1. AMLODIPINE [Concomitant]
     Active Substance: AMLODIPINE BESYLATE
     Route: 065
  2. VANCOMYCIN [Concomitant]
     Active Substance: VANCOMYCIN
     Route: 065
  3. CLEXANE [Concomitant]
     Active Substance: ENOXAPARIN SODIUM
     Route: 065
  4. ATENOLOL. [Concomitant]
     Active Substance: ATENOLOL
     Route: 065
  5. OMEPRAZOLE. [Concomitant]
     Active Substance: OMEPRAZOLE
     Route: 065
  6. THYMOGLOBULINE [Suspect]
     Active Substance: LAPINE T-LYMPHOCYTE IMMUNE GLOBULIN
     Indication: PANCREAS TRANSPLANT
     Route: 065
  7. FLUCONAZOLE. [Concomitant]
     Active Substance: FLUCONAZOLE
     Route: 065
  8. PREDNISONE. [Concomitant]
     Active Substance: PREDNISONE
     Route: 065
  9. CLAFORAN [Concomitant]
     Active Substance: CEFOTAXIME SODIUM
     Route: 065
  10. EVEROLIMUS. [Concomitant]
     Active Substance: EVEROLIMUS
     Route: 065

REACTIONS (16)
  - Dysphagia [Fatal]
  - Abdominal distension [Fatal]
  - Hypotension [Fatal]
  - Haematoma [Fatal]
  - Vomiting [Fatal]
  - Respiratory disorder [Fatal]
  - Shock [Fatal]
  - Pain [Fatal]
  - Cyanosis [Fatal]
  - Cardio-respiratory arrest [Fatal]
  - Retroperitoneal haemorrhage [Fatal]
  - Metabolic acidosis [Fatal]
  - Septic shock [Fatal]
  - Cardiac disorder [Fatal]
  - Graft thrombosis [Fatal]
  - Nystagmus [Fatal]

NARRATIVE: CASE EVENT DATE: 20170721
